FAERS Safety Report 25485522 (Version 1)
Quarter: 2025Q2

REPORT INFORMATION
  Report Type: Other
  Country: JP (occurrence: JP)
  Receive Date: 20250626
  Receipt Date: 20250626
  Transmission Date: 20250717
  Serious: Yes (Other)
  Sender: NX DEVELOPMENT CORPORATION
  Company Number: JP-sbiph-S000198510P

PATIENT
  Age: 8 Decade

DRUGS (1)
  1. AMINOLEVULINIC ACID HYDROCHLORIDE [Suspect]
     Active Substance: AMINOLEVULINIC ACID HYDROCHLORIDE
     Indication: Photodynamic diagnostic procedure
     Route: 048

REACTIONS (1)
  - Shock [Recovered/Resolved]
